FAERS Safety Report 9799007 (Version 1)
Quarter: 2014Q1

REPORT INFORMATION
  Report Type: Spontaneous
  Country: US (occurrence: US)
  Receive Date: 20140106
  Receipt Date: 20140106
  Transmission Date: 20141002
  Serious: No
  Sender: FDA-Public Use
  Company Number: US-GILEAD-2010-0032353

PATIENT
  Age: 79 Year
  Sex: Female
  Weight: 78.02 kg

DRUGS (15)
  1. LETAIRIS [Suspect]
     Indication: PULMONARY ARTERIAL HYPERTENSION
     Route: 048
     Dates: start: 20100813
  2. ATENOLOL [Concomitant]
  3. PRINIVIL [Concomitant]
  4. IMDUR [Concomitant]
  5. PRAVASTATIN [Concomitant]
  6. ASPIRIN [Concomitant]
  7. ACTOS [Concomitant]
  8. OMEPRAZOLE [Concomitant]
  9. CELEXA [Concomitant]
  10. DEPAKOTE [Concomitant]
  11. LEVOTHYROXINE [Concomitant]
  12. METHOTREXATE [Concomitant]
  13. ESTER C [Concomitant]
  14. VITAMIN D [Concomitant]
  15. ICAPS [Concomitant]

REACTIONS (2)
  - Oedema [Unknown]
  - Dyspnoea [Unknown]
